FAERS Safety Report 6057854-5 (Version None)
Quarter: 2009Q1

REPORT INFORMATION
  Report Type: 
  Country: None (occurrence: None)
  Receive Date: 20090129
  Receipt Date: 20090121
  Transmission Date: 20090719
  Serious: Yes (Other)
  Sender: FDA-Public Use
  Company Number: US-GENENTECH-275382

PATIENT
  Sex: Male
  Weight: 12.698 kg

DRUGS (1)
  1. NUTROPIN AQ [Suspect]
     Indication: GROWTH HORMONE DEFICIENCY
     Dosage: 0.3 MG/KG, QDX6D/WK
     Route: 058
     Dates: start: 20071101

REACTIONS (1)
  - OSTEOCHONDROSIS [None]
